FAERS Safety Report 9785659 (Version 3)
Quarter: 2014Q1

REPORT INFORMATION
  Report Type: Report from Study
  Country: US (occurrence: US)
  Receive Date: 20131227
  Receipt Date: 20140130
  Transmission Date: 20141002
  Serious: Yes (Hospitalization, Other)
  Sender: FDA-Public Use
  Company Number: US-TEVA-453205USA

PATIENT
  Age: 69 Year
  Sex: Female
  Weight: 107.5 kg

DRUGS (18)
  1. BENDAMUSTINE [Suspect]
     Indication: CHRONIC LYMPHOCYTIC LEUKAEMIA
     Route: 042
     Dates: start: 20130910
  2. BENDAMUSTINE [Suspect]
     Route: 042
     Dates: start: 20131209
  3. BENDAMUSTINE [Suspect]
     Route: 042
     Dates: start: 20131210
  4. RITUXIMAB [Suspect]
     Indication: CHRONIC LYMPHOCYTIC LEUKAEMIA
     Route: 042
     Dates: start: 20130909
  5. RITUXIMAB [Suspect]
     Route: 042
     Dates: start: 20131209
  6. RITUXIMAB [Suspect]
     Route: 042
     Dates: start: 20131210
  7. IBRUTINIB/PLACEBO [Suspect]
     Indication: CHRONIC LYMPHOCYTIC LEUKAEMIA
     Dosage: 420 MILLIGRAM DAILY;
     Route: 048
     Dates: start: 20130910
  8. IBRUTINIB/PLACEBO [Suspect]
     Route: 048
     Dates: start: 20131209
  9. IBRUTINIB/PLACEBO [Suspect]
     Route: 048
     Dates: start: 20131210
  10. TRIAMTERENE/HCTZ [Concomitant]
     Dosage: 1/2 TABLET (75/50) DAILY
  11. ALLOPURINOL [Concomitant]
  12. CALCIUM [Concomitant]
     Dosage: 2 UNKNOWN DAILY;
  13. LABETALOL [Concomitant]
  14. ONDANSETRON [Concomitant]
     Dosage: EVERY 8 HOURS AS NEEDED
  15. POTASSIUM CHLORIDE [Concomitant]
  16. TUMS [Concomitant]
  17. VITAMIN D3 [Concomitant]
  18. LOSARTAN [Concomitant]

REACTIONS (1)
  - Atrial fibrillation [Recovered/Resolved]
